FAERS Safety Report 5234123-4 (Version None)
Quarter: 2007Q1

REPORT INFORMATION
  Report Type: 
  Country: None (occurrence: None)
  Receive Date: 20070208
  Receipt Date: 20070205
  Transmission Date: 20070707
  Serious: Yes (Other)
  Sender: FDA-Public Use
  Company Number: US-GILEAD-2007-0011207

PATIENT
  Age: 30 Year
  Sex: Female

DRUGS (11)
  1. TRUVADA [Suspect]
     Indication: HIV INFECTION
     Route: 048
     Dates: start: 20050707
  2. SUSTIVA [Concomitant]
     Indication: HIV INFECTION
     Route: 048
     Dates: start: 20050707, end: 20070111
  3. KALETRA [Concomitant]
     Indication: HIV INFECTION
     Route: 048
     Dates: start: 20070111
  4. DEPO-PROVERA [Concomitant]
     Dates: start: 20061221
  5. AVANDIA [Concomitant]
     Dates: end: 20070104
  6. ZOLOFT [Concomitant]
     Dates: end: 20070111
  7. ELAVIL [Concomitant]
     Dates: end: 20070111
  8. IMITREX [Concomitant]
     Dates: end: 20070111
  9. AMBIEN [Concomitant]
     Dates: end: 20070111
  10. ASPIRIN [Concomitant]
     Dates: end: 20070111
  11. CLOTRIMAZOLE [Concomitant]
     Dates: end: 20070111

REACTIONS (1)
  - ABORTION SPONTANEOUS [None]
